FAERS Safety Report 9515672 (Version 1)
Quarter: 2013Q1

REPORT INFORMATION
  Report Type: Spontaneous
  Country: US (occurrence: None)
  Receive Date: 20130305
  Receipt Date: 20130305
  Transmission Date: 20140127
  Serious: Yes (Other)
  Sender: FDA-Public Use
  Company Number: 163-21880-12103633

PATIENT
  Age: 49 Year
  Sex: Female

DRUGS (6)
  1. REVLIMID (LENALIDOMIDE) (25 MILLIGRAM, CAPSULE) [Suspect]
     Indication: PLASMA CELL MYELOMA
     Dosage: 25 MG, 14 IN 21 D, PO
     Route: 048
     Dates: start: 20120505, end: 20121018
  2. DEXAMETHASONE (DEXAMETHASONE) (UNKNOWN) [Concomitant]
  3. LISIINOPRIL (LISINOPRIL) (UNKNOWN) [Concomitant]
  4. PAXIL (PAROXETINE HYDROCHLORIDE) (UNKNOWN) [Concomitant]
  5. MOBIC (MELOXICAM) (UNKNOWN) [Concomitant]
  6. VELCADE (UNKNOWN) [Concomitant]

REACTIONS (2)
  - Plasma cell myeloma [None]
  - Drug ineffective [None]
